FAERS Safety Report 21217382 (Version 1)
Quarter: 2022Q3

REPORT INFORMATION
  Report Type: Spontaneous
  Country: US (occurrence: None)
  Receive Date: 20220816
  Receipt Date: 20220816
  Transmission Date: 20221026
  Serious: Yes (unspecified)
  Sender: FDA-Public Use
  Company Number: None

PATIENT
  Age: 63 Year
  Sex: Female
  Weight: 72 kg

DRUGS (1)
  1. BELBUCA [Suspect]
     Active Substance: BUPRENORPHINE HYDROCHLORIDE
     Indication: Back pain
     Dosage: OTHER QUANTITY : 1 PATCH(ES);?OTHER FREQUENCY : 1/2 PATCH-3 X DAY;?OTHER ROUTE : ORAL BUCCAL FILM;?
     Route: 050
     Dates: start: 20210823, end: 20220322

REACTIONS (3)
  - Dental caries [None]
  - Tooth abscess [None]
  - Tooth infection [None]

NARRATIVE: CASE EVENT DATE: 20220426
